FAERS Safety Report 14243394 (Version 1)
Quarter: 2017Q4

REPORT INFORMATION
  Report Type: Spontaneous
  Country: MY (occurrence: MY)
  Receive Date: 20171201
  Receipt Date: 20171201
  Transmission Date: 20180321
  Serious: Yes (Hospitalization)
  Sender: FDA-Public Use
  Company Number: MY-PFIZER INC-2017513861

PATIENT
  Age: 26 Year
  Sex: Female

DRUGS (4)
  1. ATENOLOL. [Suspect]
     Active Substance: ATENOLOL
     Dosage: 1000 MG, UNK (TOOK 10 TAB OF 100 MG)
     Route: 048
  2. AMLODIPINE BESILATE [Suspect]
     Active Substance: AMLODIPINE BESYLATE
     Dosage: 400 MG, UNK (TOOK 40 TABLETS)
     Route: 048
  3. GLICAZIDE [Suspect]
     Active Substance: GLICLAZIDE
     Dosage: 800 MG, UNK (TOOK 10 TABLETS)
     Route: 048
  4. CO-APROVEL [Suspect]
     Active Substance: HYDROCHLOROTHIAZIDE\IRBESARTAN
     Dosage: 2400 MG, UNK (TOOK 8 TABLETS)
     Route: 048

REACTIONS (4)
  - Hypotension [Recovered/Resolved]
  - Toxicity to various agents [Recovered/Resolved]
  - Metabolic acidosis [Recovered/Resolved]
  - Intentional overdose [Unknown]
